FAERS Safety Report 5496761-3 (Version None)
Quarter: 2007Q4

REPORT INFORMATION
  Report Type: 
  Country: None (occurrence: None)
  Receive Date: 20071025
  Receipt Date: 20071019
  Transmission Date: 20080405
  Serious: No
  Sender: FDA-Public Use
  Company Number: A0669507A

PATIENT
  Age: 87 Year
  Sex: Male

DRUGS (2)
  1. ADVAIR DISKUS 100/50 [Suspect]
     Indication: ASTHMA
     Route: 055
     Dates: start: 20040101, end: 20070701
  2. NO CONCURRENT MEDICATION [Concomitant]

REACTIONS (5)
  - ANOREXIA [None]
  - BURNING SENSATION [None]
  - DYSPNOEA [None]
  - EXTRASYSTOLES [None]
  - PHARMACEUTICAL PRODUCT COMPLAINT [None]
